FAERS Safety Report 7709611-9 (Version None)
Quarter: 2011Q3

REPORT INFORMATION
  Report Type: 
  Country: None (occurrence: None)
  Receive Date: 20110825
  Receipt Date: 20110810
  Transmission Date: 20111222
  Serious: Yes (Hospitalization)
  Sender: FDA-Public Use
  Company Number: US-GLAXOSMITHKLINE-A0873740A

PATIENT
  Age: 62 Year
  Sex: Female
  Weight: 112.7 kg

DRUGS (18)
  1. INSULIN [Concomitant]
  2. LIPITOR [Concomitant]
  3. TOPROL-XL [Concomitant]
  4. KLOR-CON [Concomitant]
  5. DIOVAN [Concomitant]
  6. MAG-OX [Concomitant]
  7. MEDROL [Concomitant]
  8. DIGOXIN [Concomitant]
  9. VIOXX [Concomitant]
  10. AMARYL [Concomitant]
  11. ZYRTEC [Concomitant]
  12. NORTRIPTYLINE HCL [Concomitant]
  13. VICODIN [Concomitant]
  14. ASPIRIN [Concomitant]
  15. LOTREL [Concomitant]
  16. GLUCOPHAGE [Concomitant]
  17. AVANDIA [Suspect]
     Indication: DIABETES MELLITUS
     Dosage: 8MG PER DAY
     Route: 048
     Dates: start: 20000101
  18. LASIX [Concomitant]

REACTIONS (3)
  - MYOCARDIAL INFARCTION [None]
  - ANGINA PECTORIS [None]
  - CARDIAC FAILURE CONGESTIVE [None]
